FAERS Safety Report 6315220-9 (Version None)
Quarter: 2009Q3

REPORT INFORMATION
  Report Type: 
  Country: None (occurrence: None)
  Receive Date: 20090819
  Receipt Date: 20090804
  Transmission Date: 20100115
  Serious: Yes (Other)
  Sender: FDA-Public Use
  Company Number: PHHY2009GR34028

PATIENT
  Age: 36 Year
  Sex: Female

DRUGS (3)
  1. ZOLEDRONIC ACID [Suspect]
     Indication: PLASMACYTOMA
     Dosage: 4 MG, OVER 15 MIN FOR 9 MONTHS
  2. RADIOTHERAPY [Concomitant]
  3. CORTICOSTEROID NOS [Concomitant]
     Dosage: UNK

REACTIONS (10)
  - CARDIOMYOPATHY [None]
  - FOCAL SEGMENTAL GLOMERULOSCLEROSIS [None]
  - HYPOALBUMINAEMIA [None]
  - NEPHROTIC SYNDROME [None]
  - PERICARDITIS [None]
  - PROTEINURIA [None]
  - RENAL FAILURE [None]
  - RENAL TUBULAR NECROSIS [None]
  - URINARY TRACT INFLAMMATION [None]
  - VERTEBRAL COLUMN MASS [None]
